FAERS Safety Report 4353988-1 (Version None)
Quarter: 2004Q2

REPORT INFORMATION
  Report Type: 
  Country: None (occurrence: None)
  Receive Date: 20040506
  Receipt Date: 20040315
  Transmission Date: 20050107
  Serious: No
  Sender: FDA-Public Use
  Company Number: US-GLAXOSMITHKLINE-A0502887A

PATIENT
  Sex: Male

DRUGS (3)
  1. AVANDAMET [Suspect]
     Dosage: 1TAB TWICE PER DAY
     Route: 048
  2. STARLIX [Concomitant]
  3. LISINOPRIL [Concomitant]

REACTIONS (1)
  - STOOL ANALYSIS ABNORMAL [None]
